FAERS Safety Report 6419908-0 (Version None)
Quarter: 2009Q4

REPORT INFORMATION
  Report Type: 
  Country: None (occurrence: None)
  Receive Date: 20091029
  Receipt Date: 20091021
  Transmission Date: 20100525
  Serious: Yes (Hospitalization)
  Sender: FDA-Public Use
  Company Number: FR-WYE-H11852709

PATIENT
  Sex: Female

DRUGS (4)
  1. CORDARONE [Suspect]
     Indication: ATRIAL FIBRILLATION
     Route: 048
     Dates: start: 20090812
  2. AUGMENTIN [Interacting]
     Indication: LUNG DISORDER
     Route: 048
     Dates: start: 20090812, end: 20090822
  3. LEVOTHYROXINE SODIUM [Interacting]
     Indication: HYPOTHYROIDISM
     Route: 048
  4. PREVISCAN [Interacting]
     Indication: THROMBOSIS PROPHYLAXIS
     Dosage: NOT PROVIDED
     Route: 048
     Dates: start: 20090812, end: 20090819

REACTIONS (4)
  - DRUG INTERACTION [None]
  - DUODENAL ULCER HAEMORRHAGE [None]
  - INTERNATIONAL NORMALISED RATIO INCREASED [None]
  - MELAENA [None]
